FAERS Safety Report 19153518 (Version 1)
Quarter: 2021Q2

REPORT INFORMATION
  Report Type: Spontaneous
  Country: US (occurrence: US)
  Receive Date: 20210419
  Receipt Date: 20210419
  Transmission Date: 20210717
  Serious: No
  Sender: FDA-Public Use
  Company Number: US-KVK-TECH, INC-20201100015

PATIENT
  Age: 52 Year
  Sex: Female
  Weight: 67.12 kg

DRUGS (4)
  1. PHENTERMINE HYDROCHLORIDE TABLETS, USP [Suspect]
     Active Substance: PHENTERMINE HYDROCHLORIDE
     Dosage: 1 TABLET A DAY
     Route: 048
     Dates: start: 202009
  2. SYNTHROID [Concomitant]
     Active Substance: LEVOTHYROXINE SODIUM
     Indication: HYPOTHYROIDISM
     Dosage: 125 MG ONE TABLET A DAY
  3. PHENTERMINE HYDROCHLORIDE TABLETS, USP [Suspect]
     Active Substance: PHENTERMINE HYDROCHLORIDE
     Indication: WEIGHT DECREASED
     Dosage: 1 TABLET IN A DAY
     Route: 048
     Dates: start: 202001, end: 202002
  4. PHENTERMINE HYDROCHLORIDE TABLETS, USP [Suspect]
     Active Substance: PHENTERMINE HYDROCHLORIDE
     Dosage: AS NECESSARY, MAYBE ONE TO TWO TIMES EVERY TWO WEEKS
     Route: 048
     Dates: start: 202002, end: 2020

REACTIONS (4)
  - Product colour issue [Unknown]
  - Drug ineffective [Unknown]
  - Somnolence [Recovered/Resolved]
  - Hunger [Unknown]

NARRATIVE: CASE EVENT DATE: 2020
